FAERS Safety Report 6982465-4 (Version None)
Quarter: 2010Q3

REPORT INFORMATION
  Report Type: 
  Country: None (occurrence: None)
  Receive Date: 20100914
  Receipt Date: 20100207
  Transmission Date: 20110219
  Serious: Yes (Hospitalization, Other)
  Sender: FDA-Public Use
  Company Number: US-PFIZER INC-2010017598

PATIENT
  Sex: Male
  Weight: 104.32 kg

DRUGS (1)
  1. LYRICA [Suspect]
     Indication: PAIN
     Dosage: 150 MG, 2X/DAY
     Route: 048
     Dates: start: 20090101, end: 20100101

REACTIONS (6)
  - DELUSION [None]
  - FEELING ABNORMAL [None]
  - MUSCLE TWITCHING [None]
  - PAIN [None]
  - TREMOR [None]
  - WEIGHT INCREASED [None]
